FAERS Safety Report 15976952 (Version 1)
Quarter: 2019Q1

REPORT INFORMATION
  Report Type: Spontaneous
  Country: US (occurrence: US)
  Receive Date: 20190218
  Receipt Date: 20190218
  Transmission Date: 20190418
  Serious: Yes (Other)
  Sender: FDA-Public Use
  Company Number: US-AKORN PHARMACEUTICALS-2019AKN00238

PATIENT
  Age: 28 Year
  Sex: Male

DRUGS (1)
  1. TRIAMCINOLONE ACETONIDE. [Suspect]
     Active Substance: TRIAMCINOLONE ACETONIDE
     Indication: CHALAZION
     Dosage: 5 MG (0.5 ML), ONCE
     Route: 065

REACTIONS (2)
  - Macular detachment [Recovering/Resolving]
  - Chorioretinopathy [Recovering/Resolving]
